FAERS Safety Report 16826889 (Version 1)
Quarter: 2019Q3

REPORT INFORMATION
  Report Type: Spontaneous
  Country: IT (occurrence: IT)
  Receive Date: 20190919
  Receipt Date: 20190919
  Transmission Date: 20191005
  Serious: Yes (Life-Threatening)
  Sender: FDA-Public Use
  Company Number: IT-009507513-1909ITA006398

PATIENT
  Age: 53 Year
  Sex: Male

DRUGS (1)
  1. CUBICIN [Suspect]
     Active Substance: DAPTOMYCIN
     Indication: STREPTOCOCCAL INFECTION
     Dosage: 500 MILLIGRAM, QD
     Route: 042

REACTIONS (2)
  - Neutropenia [Unknown]
  - Pyrexia [Unknown]
